FAERS Safety Report 4967214-3 (Version None)
Quarter: 2006Q2

REPORT INFORMATION
  Report Type: 
  Country: None (occurrence: None)
  Receive Date: 20060403
  Receipt Date: 20060323
  Transmission Date: 20061013
  Serious: Yes (Death, Life-Threatening, Hospitalization, Other)
  Sender: FDA-Public Use
  Company Number: 2005098299

PATIENT
  Age: 48 Year
  Sex: Female

DRUGS (4)
  1. BEXTRA [Suspect]
     Indication: ILL-DEFINED DISORDER
     Dates: start: 20020401, end: 20030619
  2. PREVACID [Concomitant]
  3. ALLEGRA [Concomitant]
  4. DARVOCET [Concomitant]

REACTIONS (6)
  - BACK PAIN [None]
  - CARDIAC ARREST [None]
  - DYSPNOEA [None]
  - HEART RATE DECREASED [None]
  - MYOCARDIAL INFARCTION [None]
  - THERAPY NON-RESPONDER [None]
